FAERS Safety Report 5787300-8 (Version None)
Quarter: 2008Q2

REPORT INFORMATION
  Report Type: 
  Country: None (occurrence: None)
  Receive Date: 20080623
  Receipt Date: 20080623
  Transmission Date: 20081010
  Serious: Yes (Other)
  Sender: FDA-Public Use
  Company Number: None

PATIENT
  Age: 35 Year
  Sex: Female
  Weight: 77.1115 kg

DRUGS (2)
  1. CYMBALTA [Suspect]
     Indication: PREMENSTRUAL SYNDROME
     Dosage: 60 MG EVERY DAY PO
     Route: 048
     Dates: start: 20070601, end: 20080621
  2. CYMBALTA [Suspect]
     Dosage: 20 MG EVERY DAY PO
     Route: 048

REACTIONS (8)
  - BALANCE DISORDER [None]
  - DIARRHOEA [None]
  - DIZZINESS [None]
  - DRUG WITHDRAWAL SYNDROME [None]
  - HEADACHE [None]
  - QUALITY OF LIFE DECREASED [None]
  - VOMITING [None]
  - WEIGHT INCREASED [None]
